FAERS Safety Report 4532303-4 (Version None)
Quarter: 2004Q4

REPORT INFORMATION
  Report Type: 
  Country: None (occurrence: None)
  Receive Date: 20041206
  Receipt Date: 20041015
  Transmission Date: 20050328
  Serious: No
  Sender: FDA-Public Use
  Company Number: US_0410107169

PATIENT
  Age: 32 Year
  Sex: Male

DRUGS (1)
  1. CYMBALTA [Suspect]
     Indication: DEPRESSION
     Dates: start: 20041001

REACTIONS (4)
  - HOARSENESS [None]
  - INSOMNIA [None]
  - NASAL CONGESTION [None]
  - STOMACH DISCOMFORT [None]
